FAERS Safety Report 9517246 (Version 1)
Quarter: 2013Q3

REPORT INFORMATION
  Report Type: Report from Study
  Country: CZ (occurrence: CZ)
  Receive Date: 20130911
  Receipt Date: 20130911
  Transmission Date: 20140515
  Serious: Yes (Hospitalization)
  Sender: FDA-Public Use
  Company Number: CZ-ABBOTT-13P-217-1143884-00

PATIENT
  Age: 64 Year
  Sex: Female

DRUGS (5)
  1. HUMIRA [Suspect]
     Indication: RHEUMATOID ARTHRITIS
     Route: 058
     Dates: start: 20101004
  2. SORTIS [Concomitant]
     Indication: PRODUCT USED FOR UNKNOWN INDICATION
  3. TREXAN [Concomitant]
     Indication: PRODUCT USED FOR UNKNOWN INDICATION
  4. ACIDUM FOLICUM [Concomitant]
     Indication: PRODUCT USED FOR UNKNOWN INDICATION
  5. HELICID [Concomitant]
     Indication: PRODUCT USED FOR UNKNOWN INDICATION

REACTIONS (2)
  - Atrial tachycardia [Recovered/Resolved]
  - Atrial fibrillation [Recovered/Resolved]
